FAERS Safety Report 4873075-3 (Version None)
Quarter: 2006Q1

REPORT INFORMATION
  Report Type: 
  Country: None (occurrence: None)
  Receive Date: 20060104
  Receipt Date: 20060104
  Transmission Date: 20060701
  Serious: Yes (Hospitalization)
  Sender: FDA-Public Use
  Company Number: None

PATIENT
  Sex: Male
  Weight: 94 kg

DRUGS (10)
  1. GLEEVEC [Suspect]
     Indication: ACUTE MYELOID LEUKAEMIA
     Dosage: 300 MG   QD  PO
     Route: 048
  2. GLEEVEC [Suspect]
     Indication: LEUKAEMIA RECURRENT
     Dosage: 300 MG   QD  PO
     Route: 048
  3. OXYCODONE [Concomitant]
  4. NEXIUM [Concomitant]
  5. GLEEVEC [Concomitant]
  6. ATIVAN [Concomitant]
  7. ACYCLOVIR [Concomitant]
  8. HYDROCHLOROTHIAZIDE [Concomitant]
  9. CARDIZEM CD [Concomitant]
  10. MULTI-VITAMIN [Concomitant]

REACTIONS (6)
  - BODY TEMPERATURE INCREASED [None]
  - CENTRAL LINE INFECTION [None]
  - CHILLS [None]
  - HEADACHE [None]
  - NAUSEA [None]
  - PSEUDOMONAS INFECTION [None]
